FAERS Safety Report 7560191-0 (Version None)
Quarter: 2011Q2

REPORT INFORMATION
  Report Type: 
  Country: None (occurrence: None)
  Receive Date: 20110621
  Receipt Date: 20110603
  Transmission Date: 20111010
  Serious: Yes (Other)
  Sender: FDA-Public Use
  Company Number: B0698957A

PATIENT
  Age: 38 Year
  Sex: Female
  Weight: 157.7 kg

DRUGS (5)
  1. GLUCOPHAGE [Concomitant]
  2. TRAZODONE HCL [Concomitant]
  3. AVANDIA [Suspect]
     Indication: TYPE 2 DIABETES MELLITUS
     Dosage: 4MG PER DAY
     Route: 048
     Dates: start: 20020826, end: 20050915
  4. AVANDAMET [Suspect]
     Indication: INSULIN RESISTANCE
     Route: 048
     Dates: start: 20030107, end: 20030501
  5. VIOXX [Concomitant]

REACTIONS (4)
  - CARDIOMYOPATHY [None]
  - MYOCARDIAL ISCHAEMIA [None]
  - PAIN [None]
  - FLUID RETENTION [None]
